FAERS Safety Report 9270291 (Version 5)
Quarter: 2014Q2

REPORT INFORMATION
  Report Type: Spontaneous
  Country: US (occurrence: US)
  Receive Date: 20130503
  Receipt Date: 20140402
  Transmission Date: 20141212
  Serious: Yes (Hospitalization, Disabling, Other)
  Sender: FDA-Public Use
  Company Number: US-009507513-1106USA01811

PATIENT
  Sex: Female
  Weight: 88.45 kg

DRUGS (3)
  1. FOSAMAX [Suspect]
     Indication: OSTEOPENIA
     Dosage: 70 MG, QW
     Route: 048
     Dates: start: 1997, end: 2006
  2. FOSAMAX [Suspect]
     Dosage: 70 MG, QW
     Route: 048
     Dates: start: 2006, end: 2010
  3. CALCIUM (UNSPECIFIED) (+) VITAMIN D (UNSPECIFIED) [Concomitant]
     Dosage: UNK MG, UNK
     Dates: start: 1997

REACTIONS (42)
  - Femur fracture [Recovered/Resolved]
  - Open reduction of fracture [Unknown]
  - Fall [Unknown]
  - Mastectomy [Unknown]
  - Breast cancer [Unknown]
  - Toxicity to various agents [Unknown]
  - Breast cancer [Unknown]
  - Low turnover osteopathy [Not Recovered/Not Resolved]
  - Anaemia [Unknown]
  - Tooth fracture [Unknown]
  - Teeth brittle [Unknown]
  - Fracture delayed union [Recovered/Resolved]
  - Radius fracture [Unknown]
  - Medical device complication [Unknown]
  - Vitamin D deficiency [Not Recovered/Not Resolved]
  - Depression [Unknown]
  - Osteoarthritis [Unknown]
  - Bone loss [Unknown]
  - Faecal incontinence [Unknown]
  - Hypertension [Unknown]
  - Bladder disorder [Not Recovered/Not Resolved]
  - Osteoarthritis [Not Recovered/Not Resolved]
  - Weight fluctuation [Unknown]
  - Bursitis [Unknown]
  - Hyperlipidaemia [Unknown]
  - Vision blurred [Unknown]
  - Gingival swelling [Unknown]
  - Foot fracture [Unknown]
  - Tendonitis [Unknown]
  - Exostosis [Unknown]
  - Carpal tunnel decompression [Unknown]
  - Peripheral nerve operation [Unknown]
  - Osteoarthritis [Not Recovered/Not Resolved]
  - Ilium fracture [Recovering/Resolving]
  - Neck pain [Not Recovered/Not Resolved]
  - Drug hypersensitivity [Unknown]
  - Pain in jaw [Unknown]
  - Abdominal pain [Unknown]
  - Muscle spasms [Unknown]
  - Abdominal discomfort [Unknown]
  - Dyspepsia [Unknown]
  - Arthralgia [Unknown]
